FAERS Safety Report 8297244-8 (Version None)
Quarter: 2012Q2

REPORT INFORMATION
  Report Type: 
  Country: None (occurrence: None)
  Receive Date: 20120416
  Receipt Date: 20120406
  Transmission Date: 20120825
  Serious: Yes (Other)
  Sender: FDA-Public Use
  Company Number: 2012SP018707

PATIENT
  Age: 59 Year
  Sex: Male
  Weight: 64 kg

DRUGS (13)
  1. CARNACULIN [Concomitant]
  2. XALATAN [Concomitant]
  3. DEPAS [Concomitant]
  4. MUCOSTA [Concomitant]
  5. ACETAMINOPHEN [Concomitant]
  6. HALCION [Concomitant]
  7. REBETOL [Suspect]
     Indication: HEPATITIS C
     Dosage: 800 MG;QD;PO 600 MG;QD;PO
     Route: 048
     Dates: start: 20120306, end: 20120309
  8. REBETOL [Suspect]
     Indication: HEPATITIS C
     Dosage: 800 MG;QD;PO 600 MG;QD;PO
     Route: 048
     Dates: start: 20120310, end: 20120315
  9. VOLTAREN [Concomitant]
  10. PEG-INTRON [Suspect]
     Indication: HEPATITIS C
     Dosage: 1.5 MCG/KG;QW;SC
     Route: 058
     Dates: start: 20120306, end: 20120313
  11. TELAVIC (ANTIVIRALS NOS) [Suspect]
     Indication: HEPATITIS C
     Dosage: 2250 MG;QD;PO
     Route: 048
     Dates: start: 20120306, end: 20120315
  12. LOXONIN [Concomitant]
  13. OLMESARTAN MEDOXOMIL [Concomitant]

REACTIONS (4)
  - RENAL FAILURE ACUTE [None]
  - SOMNOLENCE [None]
  - RENAL TUBULAR NECROSIS [None]
  - DEHYDRATION [None]
